FAERS Safety Report 8191966-5 (Version None)
Quarter: 2012Q1

REPORT INFORMATION
  Report Type: 
  Country: None (occurrence: None)
  Receive Date: 20120307
  Receipt Date: 20120302
  Transmission Date: 20120608
  Serious: Yes (Hospitalization)
  Sender: FDA-Public Use
  Company Number: PHHY2012JP019238

PATIENT

DRUGS (6)
  1. DIOVAN [Suspect]
     Dosage: 80 MG, DAILY
     Route: 048
  2. CORINAE L [Concomitant]
     Dosage: 20 MG, UNK
     Route: 048
  3. DIOVAN [Suspect]
     Dosage: 40 MG, DAILY
     Route: 048
  4. OMEPRAZOLE [Concomitant]
     Route: 048
  5. FAMOGAST [Concomitant]
     Route: 048
  6. DIOVAN HCT [Suspect]
     Dosage: 1 DF, DAILY
     Route: 048

REACTIONS (5)
  - PNEUMONIA [None]
  - TINNITUS [None]
  - DYSPNOEA [None]
  - DYSGEUSIA [None]
  - FEELING ABNORMAL [None]
